FAERS Safety Report 5942344-8 (Version None)
Quarter: 2008Q4

REPORT INFORMATION
  Report Type: 
  Country: None (occurrence: None)
  Receive Date: 20081105
  Receipt Date: 20081027
  Transmission Date: 20090506
  Serious: Yes (Other)
  Sender: FDA-Public Use
  Company Number: US-AMGEN-US315628

PATIENT

DRUGS (2)
  1. ARANESP [Suspect]
     Indication: MYELODYSPLASTIC SYNDROME
     Route: 065
     Dates: end: 20080901
  2. PROCRIT [Suspect]
     Indication: MYELODYSPLASTIC SYNDROME
     Dates: end: 20080901

REACTIONS (1)
  - APLASIA PURE RED CELL [None]
